FAERS Safety Report 6902287-X (Version None)
Quarter: 2010Q3

REPORT INFORMATION
  Report Type: 
  Country: None (occurrence: None)
  Receive Date: 20100803
  Receipt Date: 20080503
  Transmission Date: 20110219
  Serious: No
  Sender: FDA-Public Use
  Company Number: US-PFIZER INC-2008039087

PATIENT
  Sex: Female
  Weight: 75 kg

DRUGS (3)
  1. LYRICA [Suspect]
     Indication: PAIN
     Dates: start: 20020101
  2. ANALGESICS [Concomitant]
  3. DRUG, UNSPECIFIED [Concomitant]

REACTIONS (3)
  - DYSGEUSIA [None]
  - ORAL DISCOMFORT [None]
  - PARAESTHESIA ORAL [None]
